FAERS Safety Report 4653936-0 (Version None)
Quarter: 2005Q2

REPORT INFORMATION
  Report Type: 
  Country: None (occurrence: None)
  Receive Date: 20050505
  Receipt Date: 20050426
  Transmission Date: 20051028
  Serious: Yes (Other)
  Sender: FDA-Public Use
  Company Number: FR-ABBOTT-05P-056-0298547-00

PATIENT
  Sex: Female

DRUGS (5)
  1. MICROPAKINE GRANULE [Suspect]
     Indication: PARTIAL SEIZURES
     Route: 048
     Dates: start: 20040518, end: 20040903
  2. MICROPAKINE GRANULE [Suspect]
     Dates: start: 20050207
  3. PARACETAMOL [Concomitant]
     Indication: PAIN
     Route: 048
     Dates: end: 20040930
  4. PARACETAMOL [Concomitant]
     Dates: start: 20050207
  5. ACETAMINOPHEN W/ CODEINE [Concomitant]
     Indication: PAIN
     Route: 050
     Dates: end: 20040930

REACTIONS (5)
  - AKINESIA [None]
  - EXTRAPYRAMIDAL DISORDER [None]
  - HYPERTONIA [None]
  - ORAL INTAKE REDUCED [None]
  - TRISMUS [None]
